FAERS Safety Report 9751728 (Version 9)
Quarter: 2014Q2

REPORT INFORMATION
  Report Type: Spontaneous
  Country: DE (occurrence: DE)
  Receive Date: 20131213
  Receipt Date: 20140626
  Transmission Date: 20141212
  Serious: Yes (Hospitalization)
  Sender: FDA-Public Use
  Company Number: DE-BIOGENIDEC-2013BI113273

PATIENT
  Age: 42 Year
  Sex: Male
  Weight: 69 kg

DRUGS (4)
  1. TYSABRI [Suspect]
     Indication: RELAPSING-REMITTING MULTIPLE SCLEROSIS
     Route: 042
     Dates: start: 20090612, end: 20131108
  2. CIPRALEX [Concomitant]
     Indication: DEPRESSION
  3. AGOMELATINE [Concomitant]
     Indication: DEPRESSION
  4. STILNOX [Concomitant]
     Indication: INSOMNIA

REACTIONS (5)
  - Progressive multifocal leukoencephalopathy [Not Recovered/Not Resolved]
  - Immune reconstitution inflammatory syndrome [Not Recovered/Not Resolved]
  - Device related sepsis [Recovered/Resolved]
  - Diarrhoea [Not Recovered/Not Resolved]
  - Herpes zoster [Unknown]
